FAERS Safety Report 5786578-4 (Version None)
Quarter: 2008Q2

REPORT INFORMATION
  Report Type: 
  Country: None (occurrence: None)
  Receive Date: 20080624
  Receipt Date: 20080612
  Transmission Date: 20081010
  Serious: Yes (Congenital Anomaly)
  Sender: FDA-Public Use
  Company Number: US-PFIZER INC-2008049828

PATIENT
  Sex: Male

DRUGS (4)
  1. SERTRALINE [Suspect]
     Indication: DEPRESSION
     Dates: start: 20030313, end: 20040101
  2. SERTRALINE [Suspect]
     Indication: ANXIETY
  3. PROZAC [Concomitant]
     Dates: start: 20031101, end: 20040101
  4. KLONOPIN [Concomitant]
     Indication: ANXIETY
     Dosage: FREQ:ALMOST EVERY NIGHT TO SLEEP

REACTIONS (6)
  - DRUG EXPOSURE DURING PREGNANCY [None]
  - PULMONARY ARTERY ATRESIA [None]
  - PULMONARY HYPERTENSION [None]
  - PULMONARY VALVE STENOSIS [None]
  - TRICUSPID VALVE DISEASE [None]
  - VENTRICULAR SEPTAL DEFECT [None]
